FAERS Safety Report 8383763-2 (Version None)
Quarter: 2012Q2

REPORT INFORMATION
  Report Type: 
  Country: None (occurrence: None)
  Receive Date: 20120524
  Receipt Date: 20120522
  Transmission Date: 20120825
  Serious: Yes (Hospitalization)
  Sender: FDA-Public Use
  Company Number: HU-ROCHE-1038842

PATIENT
  Sex: Female
  Weight: 67 kg

DRUGS (8)
  1. PERTUZUMAB [Suspect]
     Indication: BREAST CANCER METASTATIC
     Dosage: LAST DOSE PRIOR TO SAE: 19/JAN/2012
     Route: 042
     Dates: start: 20111006, end: 20120119
  2. HERCEPTIN [Suspect]
     Route: 042
     Dates: start: 20120228
  3. XELODA [Suspect]
     Route: 048
     Dates: start: 20120228
  4. RAMIPRIL W/ HYDROCHLOROTHIAZIDE [Concomitant]
     Dates: start: 20080101
  5. XELODA [Suspect]
     Indication: BREAST CANCER METASTATIC
     Dosage: LAST DOSE PRIOR TO SAE: 02/FEB/2012
     Route: 048
     Dates: start: 20111006, end: 20120119
  6. HERCEPTIN [Suspect]
     Indication: BREAST CANCER METASTATIC
     Dosage: LAST DOSE PRIOR TO SAE: 19/JAN/2012
     Route: 042
     Dates: start: 20111006, end: 20120119
  7. AMLODIPINE BESYLATE [Concomitant]
     Dates: start: 20080101
  8. PERTUZUMAB [Suspect]
     Dosage: RESTARTED
     Route: 042
     Dates: start: 20120228

REACTIONS (1)
  - PULMONARY EMBOLISM [None]
